FAERS Safety Report 10347601 (Version 1)
Quarter: 2014Q3

REPORT INFORMATION
  Report Type: Spontaneous
  Country: GB (occurrence: GB)
  Receive Date: 20140729
  Receipt Date: 20140729
  Transmission Date: 20150326
  Serious: Yes (Life-Threatening, Other)
  Sender: FDA-Public Use
  Company Number: GB-WATSON-2014-16055

PATIENT
  Age: 40 Year
  Sex: Male
  Weight: 83 kg

DRUGS (1)
  1. ALLOPURINOL (UNKNOWN) [Suspect]
     Active Substance: ALLOPURINOL
     Indication: GOUT
     Dosage: 2 DF, DAILY
     Route: 048
     Dates: start: 2006, end: 20130930

REACTIONS (2)
  - Suicidal ideation [Recovered/Resolved with Sequelae]
  - Depression [Recovered/Resolved with Sequelae]
